FAERS Safety Report 6747944-3 (Version None)
Quarter: 2010Q2

REPORT INFORMATION
  Report Type: 
  Country: None (occurrence: None)
  Receive Date: 20100528
  Receipt Date: 20100514
  Transmission Date: 20101027
  Serious: Yes (Hospitalization)
  Sender: FDA-Public Use
  Company Number: MX-GENENTECH-302284

PATIENT
  Age: 26 Year
  Sex: Female

DRUGS (1)
  1. MABTHERA [Suspect]
     Indication: THROMBOTIC THROMBOCYTOPENIC PURPURA
     Dosage: 375 MG/M2, UNK
     Route: 065

REACTIONS (1)
  - RENAL IMPAIRMENT [None]
